FAERS Safety Report 11659092 (Version 1)
Quarter: 2015Q4

REPORT INFORMATION
  Report Type: Spontaneous
  Country: CA (occurrence: CA)
  Receive Date: 20151026
  Receipt Date: 20151026
  Transmission Date: 20160304
  Serious: Yes (Other)
  Sender: FDA-Public Use
  Company Number: CA-TEVA-601949ACC

PATIENT
  Age: 31 Year
  Sex: Female
  Weight: 68.1 kg

DRUGS (1)
  1. BUPROPION. [Suspect]
     Active Substance: BUPROPION
     Indication: POSTPARTUM DEPRESSION
     Dosage: 300 MILLIGRAM DAILY;
     Route: 065

REACTIONS (5)
  - Anxiety [Recovered/Resolved]
  - Feeling abnormal [Recovered/Resolved]
  - Insomnia [Recovered/Resolved]
  - Product substitution issue [Recovered/Resolved]
  - Weight increased [Recovered/Resolved]
